FAERS Safety Report 25366578 (Version 1)
Quarter: 2025Q2

REPORT INFORMATION
  Report Type: Spontaneous
  Country: CN (occurrence: CN)
  Receive Date: 20250528
  Receipt Date: 20250528
  Transmission Date: 20250717
  Serious: Yes (Other)
  Sender: ROCHE
  Company Number: CN-ROCHE-10000292039

PATIENT
  Age: 57 Year
  Sex: Female
  Weight: 61 kg

DRUGS (2)
  1. PERTUZUMAB [Suspect]
     Active Substance: PERTUZUMAB
     Indication: Breast cancer
     Route: 042
     Dates: start: 20250426, end: 20250426
  2. TRASTUZUMAB [Suspect]
     Active Substance: TRASTUZUMAB
     Indication: Breast cancer
     Dosage: 6 MG/KG
     Route: 042
     Dates: start: 20250426, end: 20250426

REACTIONS (3)
  - Hepatic function abnormal [Unknown]
  - Myelosuppression [Unknown]
  - Breath sounds abnormal [Unknown]

NARRATIVE: CASE EVENT DATE: 20250516
